FAERS Safety Report 5078350-8 (Version None)
Quarter: 2006Q3

REPORT INFORMATION
  Report Type: 
  Country: None (occurrence: None)
  Receive Date: 20060811
  Receipt Date: 20060719
  Transmission Date: 20061208
  Serious: Yes (Other)
  Sender: FDA-Public Use
  Company Number: US-GLAXOSMITHKLINE-A0613391A

PATIENT
  Age: 5 Year
  Sex: Female

DRUGS (2)
  1. LAMICTAL [Suspect]
     Indication: EPILEPSY
     Dosage: 25MG TWICE PER DAY
     Route: 048
  2. ZYRTEC [Concomitant]
     Indication: SEASONAL ALLERGY
     Route: 048

REACTIONS (7)
  - DRUG ADMINISTRATION ERROR [None]
  - HEPATIC ENZYME INCREASED [None]
  - PYREXIA [None]
  - RASH [None]
  - RASH GENERALISED [None]
  - SKIN REACTION [None]
  - VIRAL INFECTION [None]
